FAERS Safety Report 10922031 (Version 1)
Quarter: 2015Q1

REPORT INFORMATION
  Report Type: Spontaneous
  Country: US (occurrence: None)
  Receive Date: 20150128
  Receipt Date: 20150128
  Transmission Date: 20150721
  Serious: No
  Sender: FDA-Public Use
  Company Number: 2014TUS010589

PATIENT
  Age: 75 Year
  Sex: Male
  Weight: 77.1 kg

DRUGS (3)
  1. OXYCODONE AND ACETAMINOPHEN (OXYCODONE HYDROCHLORIDE, PARACETAMOL) [Concomitant]
  2. BRINTELLIX [Suspect]
     Active Substance: VORTIOXETINE HYDROBROMIDE
     Indication: DEPRESSION
     Dosage: 10 MG SAMPLES, 1/2 TABLET QOD, ORAL
     Route: 048
     Dates: start: 20141022
  3. PREDNISONE (PREDNISONE) [Concomitant]
     Active Substance: PREDNISONE

REACTIONS (1)
  - Inappropriate schedule of drug administration [None]

NARRATIVE: CASE EVENT DATE: 20141022
